FAERS Safety Report 13540235 (Version 1)
Quarter: 2017Q2

REPORT INFORMATION
  Report Type: Spontaneous
  Country: US (occurrence: US)
  Receive Date: 20170512
  Receipt Date: 20170512
  Transmission Date: 20170830
  Serious: Yes (Hospitalization)
  Sender: FDA-Public Use
  Company Number: US-TARO PHARMACEUTICALS USA.,INC-2017SUN00147

PATIENT
  Age: 39 Year
  Sex: Male

DRUGS (1)
  1. WARFARIN [Suspect]
     Active Substance: WARFARIN
     Indication: PULMONARY EMBOLISM
     Dosage: UNK, DAILY
     Route: 065

REACTIONS (5)
  - Haematoma [Recovered/Resolved]
  - Anticoagulation drug level above therapeutic [Unknown]
  - Compartment syndrome [Recovering/Resolving]
  - Leukocytosis [Unknown]
  - Ecchymosis [Recovered/Resolved]
